FAERS Safety Report 8614254-9 (Version None)
Quarter: 2012Q3

REPORT INFORMATION
  Report Type: 
  Country: None (occurrence: None)
  Receive Date: 20120823
  Receipt Date: 20120815
  Transmission Date: 20120928
  Serious: Yes (Hospitalization, Other)
  Sender: FDA-Public Use
  Company Number: DE-GENZYME-THYM-1003339

PATIENT
  Sex: Male
  Weight: 57.1 kg

DRUGS (4)
  1. MYCOPHENOLATE MOFETIL (CELLCEPT) [Concomitant]
     Indication: RENAL TRANSPLANT
     Dosage: 1000 MG, BID
     Route: 048
     Dates: start: 20120411, end: 20120512
  2. PREDNISOLONE [Concomitant]
     Indication: RENAL TRANSPLANT
     Dosage: 25 MG, UNK
     Route: 048
     Dates: start: 20120411, end: 20120419
  3. THYMOGLOBULIN [Suspect]
     Indication: RENAL TRANSPLANT
     Dosage: 85.5 MG, UNK
     Route: 042
     Dates: start: 20120411, end: 20120413
  4. TACROLIMUS [Concomitant]
     Indication: RENAL TRANSPLANT
     Dosage: 16 MG, QD
     Route: 048
     Dates: start: 20120411, end: 20120512

REACTIONS (4)
  - TRANSPLANT FAILURE [None]
  - BLOOD CREATININE INCREASED [None]
  - INFECTION [None]
  - HYPOVOLAEMIA [None]
